FAERS Safety Report 5311437-0 (Version None)
Quarter: 2007Q2

REPORT INFORMATION
  Report Type: 
  Country: None (occurrence: None)
  Receive Date: 20070426
  Receipt Date: 20070426
  Transmission Date: 20071010
  Serious: Yes (Hospitalization)
  Sender: FDA-Public Use
  Company Number: None

PATIENT
  Age: 78 Year
  Sex: Male

DRUGS (1)
  1. WARFARIN [Suspect]
     Dosage: 5.4MG EVERY DAY PO
     Route: 048
     Dates: start: 20060810, end: 20061013

REACTIONS (1)
  - HAEMORRHAGE [None]
